FAERS Safety Report 9682424 (Version 1)
Quarter: 2013Q4

REPORT INFORMATION
  Report Type: Spontaneous
  Country: US (occurrence: US)
  Receive Date: 20131112
  Receipt Date: 20131112
  Transmission Date: 20140711
  Serious: No
  Sender: FDA-Public Use
  Company Number: US-009507513-1311USA000630

PATIENT
  Age: 27 Year
  Sex: Female
  Weight: 47.62 kg

DRUGS (2)
  1. NEXPLANON [Suspect]
     Indication: CONTRACEPTION
     Dosage: 68 MG/ 3 YEAR IMPLANT
     Route: 059
     Dates: start: 20131029, end: 20131029
  2. NEXPLANON [Suspect]
     Dosage: 68 MG/ 3 YEAR IMPLANT
     Route: 059
     Dates: start: 201310

REACTIONS (3)
  - Complication of device insertion [Unknown]
  - Product quality issue [Unknown]
  - No adverse event [Unknown]
